FAERS Safety Report 4943354-X (Version None)
Quarter: 2006Q1

REPORT INFORMATION
  Report Type: 
  Country: None (occurrence: None)
  Receive Date: 20060309
  Receipt Date: 20051214
  Transmission Date: 20060701
  Serious: Yes (Disabling)
  Sender: FDA-Public Use
  Company Number: 23100253

PATIENT
  Age: 62 Year
  Sex: Female

DRUGS (3)
  1. WARFARIN SODIUM [Suspect]
     Indication: DEEP VEIN THROMBOSIS
     Dosage: 5 MG DAILY
  2. NOVASTAN [Suspect]
     Indication: HEPARIN-INDUCED THROMBOCYTOPENIA
     Dosage: 0.5 MCG/KG/MIN IV
     Route: 042
  3. HEPARIN [Concomitant]

REACTIONS (7)
  - COAGULOPATHY [None]
  - DEEP VEIN THROMBOSIS [None]
  - GANGRENE [None]
  - HEPARIN-INDUCED THROMBOCYTOPENIA [None]
  - INTERNATIONAL NORMALISED RATIO INCREASED [None]
  - NECROSIS [None]
  - THROMBOSIS [None]
